FAERS Safety Report 7203339-X (Version None)
Quarter: 2010Q4

REPORT INFORMATION
  Report Type: 
  Country: None (occurrence: None)
  Receive Date: 20101230
  Receipt Date: 20101221
  Transmission Date: 20110411
  Serious: Yes (Other)
  Sender: FDA-Public Use
  Company Number: US-AMGEN-USASP2010005281

PATIENT

DRUGS (2)
  1. ENBREL [Suspect]
     Indication: RHEUMATOID ARTHRITIS
     Dosage: 25 MG, QWK
     Dates: start: 20100921
  2. ENBREL [Suspect]
     Dosage: 50 MG, QWK
     Dates: start: 20100801

REACTIONS (20)
  - ARTHRITIS [None]
  - BALANCE DISORDER [None]
  - BRONCHITIS [None]
  - DEPRESSION [None]
  - DIZZINESS [None]
  - DYSPNOEA [None]
  - ERYTHEMA [None]
  - FEELING ABNORMAL [None]
  - HEADACHE [None]
  - MEMORY IMPAIRMENT [None]
  - MOBILITY DECREASED [None]
  - NASOPHARYNGITIS [None]
  - OEDEMA PERIPHERAL [None]
  - OPEN WOUND [None]
  - PARAESTHESIA [None]
  - PURULENT DISCHARGE [None]
  - RASH MACULAR [None]
  - RHEUMATOID ARTHRITIS [None]
  - SKIN HAEMORRHAGE [None]
  - SKIN LESION [None]
